FAERS Safety Report 24094563 (Version 1)
Quarter: 2024Q3

REPORT INFORMATION
  Report Type: Report from Study
  Country: US (occurrence: US)
  Receive Date: 20240716
  Receipt Date: 20240716
  Transmission Date: 20241016
  Serious: Yes (Other)
  Sender: ABBVIE
  Company Number: US-ABBVIE-5836842

PATIENT
  Sex: Female

DRUGS (3)
  1. SKYRIZI [Suspect]
     Active Substance: RISANKIZUMAB-RZAA
     Indication: Crohn^s disease
     Dosage: TIME INTERVAL: 0.06666667 WEEKS: STRENGTH: 600MG AT WEEK 0?DOSE: 10 MILLIGRAM/MILLILITERS
     Route: 042
  2. SKYRIZI [Suspect]
     Active Substance: RISANKIZUMAB-RZAA
     Indication: Crohn^s disease
     Dosage: TIME INTERVAL: 0.06666667 WEEKS: STRENGTH: 600MG/10ML,  AT WEEK 4 ?DOSE: 10 MILLIGRAM/MILLILITERS
     Route: 042
  3. SKYRIZI [Suspect]
     Active Substance: RISANKIZUMAB-RZAA
     Indication: Crohn^s disease
     Dosage: TIME INTERVAL: 0.06666667 WEEKS: STRENGTH: 600MG/10ML, WEEK 8?DOSE: 10 MILLIGRAM/MILLILITERS
     Route: 042

REACTIONS (1)
  - Surgery [Unknown]
